FAERS Safety Report 5088640-0 (Version None)
Quarter: 2006Q3

REPORT INFORMATION
  Report Type: 
  Country: None (occurrence: None)
  Receive Date: 20060825
  Receipt Date: 20030626
  Transmission Date: 20061208
  Serious: Yes (Other)
  Sender: FDA-Public Use
  Company Number: US-GILEAD-2003-05690

PATIENT
  Sex: Male
  Weight: 78.542 kg

DRUGS (4)
  1. TENOFOVIR DF [Suspect]
     Indication: HIV INFECTION
     Route: 048
     Dates: start: 20030210, end: 20041111
  2. COMBIVIR [Concomitant]
  3. NEVIRAPINE [Concomitant]
  4. PHENERGAN HCL [Concomitant]

REACTIONS (4)
  - BLOOD AMYLASE INCREASED [None]
  - LIPASE INCREASED [None]
  - NAUSEA [None]
  - VOMITING [None]
